FAERS Safety Report 4449650-7 (Version None)
Quarter: 2004Q3

REPORT INFORMATION
  Report Type: 
  Country: None (occurrence: None)
  Receive Date: 20040913
  Receipt Date: 20040826
  Transmission Date: 20050211
  Serious: Yes (Death, Hospitalization, Other)
  Sender: FDA-Public Use
  Company Number: 203679

PATIENT
  Sex: Female

DRUGS (2)
  1. AVONEX [Suspect]
     Indication: MULTIPLE SCLEROSIS
     Dosage: 30 MCG QW IM
     Route: 030
     Dates: start: 19960101
  2. AVONEX [Suspect]
     Indication: MULTIPLE SCLEROSIS
     Dosage: 30 MCG QW IM
     Route: 030
     Dates: end: 20040101

REACTIONS (8)
  - BACK PAIN [None]
  - BREAST CANCER [None]
  - FALL [None]
  - HEAD INJURY [None]
  - LACERATION [None]
  - SPINAL DISORDER [None]
  - SWELLING [None]
  - TOOTH DISORDER [None]
